FAERS Safety Report 17417847 (Version 1)
Quarter: 2020Q1

REPORT INFORMATION
  Report Type: Spontaneous
  Country: BR (occurrence: BR)
  Receive Date: 20200213
  Receipt Date: 20200213
  Transmission Date: 20200409
  Serious: Yes (Hospitalization, Other)
  Sender: FDA-Public Use
  Company Number: BR-ABBVIE-20P-020-3272338-00

PATIENT
  Sex: Male

DRUGS (4)
  1. DEPAKENE [Suspect]
     Active Substance: VALPROIC ACID
     Route: 048
  2. DEPAKENE [Suspect]
     Active Substance: VALPROIC ACID
     Route: 048
  3. DEPAKENE [Suspect]
     Active Substance: VALPROIC ACID
     Dosage: DD: 25ML; 10ML AT 08H30AM; 5ML AT 2H30PM; 10ML AT 8H30PM
     Route: 048
  4. DEPAKENE [Suspect]
     Active Substance: VALPROIC ACID
     Indication: EPILEPSY
     Dosage: INITIAL DOSE
     Route: 048

REACTIONS (24)
  - Blood disorder [Unknown]
  - Product use issue [Unknown]
  - Pyrexia [Unknown]
  - Chest pain [Unknown]
  - Sinusitis [Unknown]
  - Tonsillitis [Unknown]
  - Crying [Recovered/Resolved]
  - Off label use [Unknown]
  - Indifference [Unknown]
  - Platelet count abnormal [Unknown]
  - Nausea [Recovered/Resolved]
  - Headache [Recovered/Resolved]
  - Seizure [Recovered/Resolved]
  - Immunodeficiency [Recovering/Resolving]
  - Somnolence [Recovering/Resolving]
  - Pain in extremity [Recovered/Resolved]
  - Malaise [Recovered/Resolved]
  - Diarrhoea [Unknown]
  - Agitation [Not Recovered/Not Resolved]
  - Anticonvulsant drug level abnormal [Unknown]
  - Alopecia [Not Recovered/Not Resolved]
  - Depression [Unknown]
  - Influenza [Unknown]
  - Anxiety [Unknown]

NARRATIVE: CASE EVENT DATE: 2019
